FAERS Safety Report 6429617-X (Version None)
Quarter: 2009Q4

REPORT INFORMATION
  Report Type: 
  Country: None (occurrence: None)
  Receive Date: 20091105
  Receipt Date: 20091027
  Transmission Date: 20100525
  Serious: Yes (Other)
  Sender: FDA-Public Use
  Company Number: GB-JNJCH-2009028449

PATIENT
  Sex: Female

DRUGS (1)
  1. NICORETTE [Suspect]
     Indication: SMOKING CESSATION THERAPY
     Dosage: TEXT:UNSPECIFIED
     Route: 065

REACTIONS (7)
  - CERVIX CARCINOMA [None]
  - HUMAN PAPILLOMA VIRUS TEST POSITIVE [None]
  - INFLUENZA [None]
  - LOGORRHOEA [None]
  - MALAISE [None]
  - PREMENSTRUAL SYNDROME [None]
  - WITHDRAWAL SYNDROME [None]
